FAERS Safety Report 8615868 (Version 2)
Quarter: 2012Q4

REPORT INFORMATION
  Report Type: 
  Country: US (occurrence: US)
  Receive Date: 20120614
  Receipt Date: 20121219
  Transmission Date: 20130627
  Serious: No
  Sender: FDA-Public Use
  Company Number: US-AMGEN-USASP2012030126

PATIENT
  Age: 89 Year
  Sex: Female

DRUGS (5)
  1. PROLIA [Suspect]
     Indication: OSTEOPOROSIS POSTMENOPAUSAL
     Dosage: UNK UNK, q6mo
     Dates: start: 20110926
  2. ATENOLOL [Concomitant]
     Dosage: UNK
  3. ATIVAN [Concomitant]
     Dosage: UNK
  4. REMERON [Concomitant]
     Dosage: UNK
  5. VITAMINS                           /90003601/ [Concomitant]
     Dosage: UNK

REACTIONS (5)
  - Skin burning sensation [Not Recovered/Not Resolved]
  - Pruritus generalised [Unknown]
  - Insomnia [Unknown]
  - Urticaria [Unknown]
  - Erythema [Not Recovered/Not Resolved]
